FAERS Safety Report 9933237 (Version 2)
Quarter: 2014Q1

REPORT INFORMATION
  Report Type: Report from Study
  Country: US (occurrence: US)
  Receive Date: 20140228
  Receipt Date: 20140228
  Transmission Date: 20141002
  Serious: No
  Sender: FDA-Public Use
  Company Number: US-MYLANLABS-2013S1001238

PATIENT
  Age: 16 Year
  Sex: Female

DRUGS (2)
  1. CLARAVIS [Suspect]
     Indication: ACNE
     Route: 048
  2. AMNESTEEM CAPSULES [Suspect]
     Indication: ACNE
     Route: 048
     Dates: start: 20121211, end: 20130112

REACTIONS (2)
  - Urticaria [Recovered/Resolved]
  - Rash generalised [Recovered/Resolved]
